FAERS Safety Report 17949260 (Version 1)
Quarter: 2020Q2

REPORT INFORMATION
  Report Type: Spontaneous
  Country: US (occurrence: US)
  Receive Date: 20200626
  Receipt Date: 20200626
  Transmission Date: 20200714
  Serious: Yes (Hospitalization, Disabling)
  Sender: FDA-Public Use
  Company Number: US-NOVOPROD-735179

PATIENT
  Age: 58 Year
  Sex: Male
  Weight: 117.93 kg

DRUGS (1)
  1. NOVOLIN N [Suspect]
     Active Substance: INSULIN HUMAN
     Indication: DIABETES MELLITUS
     Dosage: 80 IU, QD (40 UNITS QAM AND 40 UNITS QPM)
     Route: 058

REACTIONS (4)
  - Laryngeal cancer [Recovering/Resolving]
  - Pneumonia [Recovering/Resolving]
  - COVID-19 [Recovering/Resolving]
  - Cerebrovascular accident [Recovering/Resolving]

NARRATIVE: CASE EVENT DATE: 20160104
